FAERS Safety Report 8041430-9 (Version None)
Quarter: 2012Q1

REPORT INFORMATION
  Report Type: 
  Country: None (occurrence: None)
  Receive Date: 20120112
  Receipt Date: 20120110
  Transmission Date: 20120608
  Serious: Yes (Life-Threatening, Hospitalization)
  Sender: FDA-Public Use
  Company Number: DK-PFIZER INC-2012005367

PATIENT
  Age: 60 Year
  Sex: Female

DRUGS (12)
  1. PAMOL [Concomitant]
  2. HJERTEMAGNYL ^DAK^ [Concomitant]
  3. LERCANIDIPINE [Concomitant]
  4. TRAMADOL HCL [Concomitant]
  5. COLECALCIFEROL [Concomitant]
  6. FUROSEMIDE [Concomitant]
  7. BERODUAL [Concomitant]
  8. CALCIUM [Concomitant]
  9. DOXAZOSIN MESYLATE [Suspect]
     Indication: HYPERTENSION
     Dosage: 4 MG, 1X/DAY
     Route: 048
     Dates: start: 20111222, end: 20111223
  10. PREDNISOLONE [Concomitant]
  11. ZYRTEC [Concomitant]
  12. VENTOLIN [Concomitant]

REACTIONS (1)
  - ANGIOEDEMA [None]
